FAERS Safety Report 18572738 (Version 1)
Quarter: 2020Q4

REPORT INFORMATION
  Report Type: Other
  Country: US (occurrence: US)
  Receive Date: 20201203
  Receipt Date: 20201203
  Transmission Date: 20210114
  Serious: Yes (Other)
  Sender: FDA-Public Use
  Company Number: US-ROCHE-2721436

PATIENT
  Sex: Female

DRUGS (17)
  1. ACTEMRA [Suspect]
     Active Substance: TOCILIZUMAB
  2. BENADRYL [Concomitant]
     Active Substance: DIPHENHYDRAMINE HYDROCHLORIDE
  3. TYLENOL ARTHRITIS PAIN [Concomitant]
     Active Substance: ACETAMINOPHEN
  4. ACTEMRA [Suspect]
     Active Substance: TOCILIZUMAB
     Indication: GIANT CELL ARTERITIS
     Dosage: 162 MG/0.9ML SQ SOLUTION PREFILLED SYRINGE?INJECT 162 MG SUBCUTANEOUSLY EVERY WEEK
     Route: 058
     Dates: start: 20190520
  5. ACTEMRA [Suspect]
     Active Substance: TOCILIZUMAB
  6. NASACORT ALLERGY 24HR [Concomitant]
     Active Substance: TRIAMCINOLONE ACETONIDE
     Dosage: 24 HR 55 MCG/ACT NASAL AEROSOL
     Dates: start: 20190419
  7. ACTEMRA [Suspect]
     Active Substance: TOCILIZUMAB
  8. ESOMEPRAZOLE MAGNESIUM. [Concomitant]
     Active Substance: ESOMEPRAZOLE MAGNESIUM
     Dosage: 40 MG ORAL CAPSULE DELAYED RELEASE TAKE 1 CAPSULE DAILY
     Route: 048
     Dates: start: 20190422
  9. AMLODIPINE BESYLATE. [Concomitant]
     Active Substance: AMLODIPINE BESYLATE
     Route: 048
  10. ACTEMRA [Suspect]
     Active Substance: TOCILIZUMAB
  11. ATORVASTATIN CALCIUM. [Concomitant]
     Active Substance: ATORVASTATIN CALCIUM
     Route: 048
     Dates: start: 20160616
  12. BACTRIM DS [Concomitant]
     Active Substance: SULFAMETHOXAZOLE\TRIMETHOPRIM
     Dosage: 800-160 MG, ORAL TABLET PO THREE TIMES A WEEK, MONDAY, WEDNESDAY AND FRIDAY
     Route: 048
     Dates: start: 20190614
  13. PREDNISONE. [Concomitant]
     Active Substance: PREDNISONE
     Dosage: ORAL TABLET TAKE 1 TAB 3 TIMES DAILY WITH MEALS
     Route: 048
     Dates: start: 20190419
  14. VOLTAREN [Concomitant]
     Active Substance: DICLOFENAC SODIUM
     Dosage: 1 % TRANSDERMAL GEL
     Route: 062
  15. PREDNISONE. [Concomitant]
     Active Substance: PREDNISONE
     Route: 048
     Dates: start: 20190419
  16. ACTEMRA [Suspect]
     Active Substance: TOCILIZUMAB
     Indication: SKIN ABRASION
  17. FLUOXETINE HCL [Concomitant]
     Active Substance: FLUOXETINE HYDROCHLORIDE
     Dosage: 10 MG ORAL CAPSULE
     Route: 048
     Dates: start: 20171023

REACTIONS (1)
  - Cystitis [Unknown]
